FAERS Safety Report 6728593-X (Version None)
Quarter: 2010Q2

REPORT INFORMATION
  Report Type: 
  Country: None (occurrence: None)
  Receive Date: 20100517
  Receipt Date: 20100505
  Transmission Date: 20101027
  Serious: Yes (Hospitalization, Other)
  Sender: FDA-Public Use
  Company Number: US-PFIZER INC-2010016999

PATIENT
  Sex: Female

DRUGS (3)
  1. RELPAX [Suspect]
     Indication: MIGRAINE
     Dosage: UNK
     Dates: start: 20091201
  2. LYRICA [Suspect]
     Dosage: UNK
  3. CYMBALTA [Concomitant]

REACTIONS (10)
  - AFFECT LABILITY [None]
  - AMNESIA [None]
  - COGNITIVE DISORDER [None]
  - CONFUSIONAL STATE [None]
  - DIARRHOEA [None]
  - DISORIENTATION [None]
  - DYSPNOEA [None]
  - MIGRAINE [None]
  - PAIN [None]
  - WALKING AID USER [None]
